FAERS Safety Report 8139171-2 (Version None)
Quarter: 2012Q1

REPORT INFORMATION
  Report Type: 
  Country: None (occurrence: None)
  Receive Date: 20120215
  Receipt Date: 20120209
  Transmission Date: 20120608
  Serious: Yes (Hospitalization)
  Sender: FDA-Public Use
  Company Number: US-BAYER-2011-070636

PATIENT
  Age: 28 Year
  Sex: Female
  Weight: 85.714 kg

DRUGS (1)
  1. YASMIN [Suspect]
     Indication: CONTRACEPTION
     Dosage: UNK
     Route: 048
     Dates: start: 20030901, end: 20031201

REACTIONS (4)
  - INJURY [None]
  - FEAR [None]
  - PULMONARY EMBOLISM [None]
  - PAIN [None]
